FAERS Safety Report 9288774 (Version 2)
Quarter: 2013Q3

REPORT INFORMATION
  Report Type: Spontaneous
  Country: US (occurrence: US)
  Receive Date: 20130514
  Receipt Date: 20130723
  Transmission Date: 20140515
  Serious: Yes (Other)
  Sender: FDA-Public Use
  Company Number: US-ASTRAZENECA-2013SE32012

PATIENT
  Sex: Female

DRUGS (3)
  1. ATACAND [Suspect]
     Indication: HYPERTENSION
     Route: 048
     Dates: end: 201304
  2. ATACAND [Suspect]
     Indication: HYPERTENSION
     Dosage: GENERIC
     Route: 048
     Dates: start: 201304
  3. METFORMIN [Concomitant]

REACTIONS (4)
  - Blood glucose increased [Recovered/Resolved]
  - Type 2 diabetes mellitus [Unknown]
  - Malaise [Recovered/Resolved]
  - Drug dose omission [Unknown]
